FAERS Safety Report 6212472-0 (Version None)
Quarter: 2009Q2

REPORT INFORMATION
  Report Type: 
  Country: None (occurrence: None)
  Receive Date: 20090529
  Receipt Date: 20090504
  Transmission Date: 20091009
  Serious: Yes (Other)
  Sender: FDA-Public Use
  Company Number: 2009005636

PATIENT
  Age: 61 Year
  Sex: Male

DRUGS (1)
  1. PROVIGIL [Suspect]
     Indication: SLEEP APNOEA SYNDROME
     Dosage: ORAL
     Route: 048

REACTIONS (2)
  - BASAL CELL CARCINOMA [None]
  - SQUAMOUS CELL CARCINOMA OF SKIN [None]
